FAERS Safety Report 10089797 (Version 2)
Quarter: 2014Q2

REPORT INFORMATION
  Report Type: Spontaneous
  Country: JP (occurrence: JP)
  Receive Date: 20140421
  Receipt Date: 20140515
  Transmission Date: 20141212
  Serious: Yes (Hospitalization)
  Sender: FDA-Public Use
  Company Number: JP-ELI_LILLY_AND_COMPANY-JP201404004277

PATIENT
  Age: 21 Year
  Sex: Male

DRUGS (7)
  1. STRATTERA [Suspect]
     Indication: ATTENTION DEFICIT/HYPERACTIVITY DISORDER
     Dosage: 20 MG, BID
     Route: 048
     Dates: start: 20140226, end: 20140319
  2. STRATTERA [Suspect]
     Dosage: 40 MG, BID
     Route: 048
     Dates: start: 20140320, end: 20140325
  3. RISPERIDONE [Concomitant]
     Indication: MENTAL RETARDATION
     Dosage: 1 MG, QD
     Route: 048
     Dates: start: 20130517, end: 20140225
  4. RISPERIDONE [Concomitant]
     Indication: ATTENTION DEFICIT/HYPERACTIVITY DISORDER
     Dosage: 1.5 MG, QD
     Route: 048
     Dates: start: 20140226
  5. AKINETON                           /00079501/ [Concomitant]
     Indication: PARKINSONISM
     Dosage: 1 MG, QD
     Route: 048
  6. DEPAKENE-R [Concomitant]
     Indication: MENTAL RETARDATION
     Dosage: 200 MG, BID
     Route: 048
  7. DEPAKENE-R [Concomitant]
     Indication: ATTENTION DEFICIT/HYPERACTIVITY DISORDER

REACTIONS (4)
  - Thinking abnormal [Recovered/Resolved]
  - Abnormal behaviour [Recovered/Resolved]
  - Hallucination, auditory [Recovered/Resolved]
  - Anxiety [Recovered/Resolved]
